FAERS Safety Report 6180650-5 (Version None)
Quarter: 2009Q2

REPORT INFORMATION
  Report Type: 
  Country: None (occurrence: None)
  Receive Date: 20090506
  Receipt Date: 20090427
  Transmission Date: 20091009
  Serious: Yes (Other)
  Sender: FDA-Public Use
  Company Number: FR-ASTRAZENECA-2009CG00841

PATIENT
  Age: 13 Year
  Sex: Male

DRUGS (3)
  1. PULMICORT [Suspect]
     Indication: ASTHMA
     Route: 055
     Dates: start: 20060101
  2. NASONEX [Suspect]
     Route: 045
     Dates: start: 20060101
  3. AERIUS [Concomitant]
     Dates: start: 20060101

REACTIONS (1)
  - TYMPANIC MEMBRANE PERFORATION [None]
